FAERS Safety Report 13199679 (Version 2)
Quarter: 2017Q1

REPORT INFORMATION
  Report Type: Spontaneous
  Country: CH (occurrence: CH)
  Receive Date: 20170208
  Receipt Date: 20170215
  Transmission Date: 20170428
  Serious: Yes (Death, Other)
  Sender: FDA-Public Use
  Company Number: CH-GILEAD-2017-0256953

PATIENT
  Age: 43 Year
  Sex: Male

DRUGS (14)
  1. DAKLINZA [Suspect]
     Active Substance: DACLATASVIR
     Indication: CHRONIC HEPATITIS C
     Route: 048
     Dates: start: 201611
  2. KETALGIN (METHADONE) [Concomitant]
     Active Substance: METHADONE HYDROCHLORIDE
     Dosage: 1 DF, QD
     Route: 048
  3. SERESTA [Concomitant]
     Active Substance: OXAZEPAM
     Dosage: 105 MG, QD
     Route: 048
  4. NEURONTIN [Concomitant]
     Active Substance: GABAPENTIN
     Route: 048
  5. DUPHALAC [Concomitant]
     Active Substance: LACTULOSE
     Route: 048
  6. TRAMAL [Concomitant]
     Active Substance: TRAMADOL
     Route: 048
  7. MAGNESIUM DIASPORAL                /00434501/ [Concomitant]
     Route: 048
  8. PANTOZOL [Concomitant]
     Active Substance: PANTOPRAZOLE SODIUM
     Route: 048
  9. SEQUASE [Concomitant]
     Active Substance: QUETIAPINE FUMARATE
     Route: 048
  10. COPEGUS [Suspect]
     Active Substance: RIBAVIRIN
     Indication: CHRONIC HEPATITIS C
     Route: 048
     Dates: start: 201611
  11. SOVALDI [Suspect]
     Active Substance: SOFOSBUVIR
     Indication: CHRONIC HEPATITIS C
     Route: 048
     Dates: start: 201611
  12. ALDACTONE [Concomitant]
     Active Substance: SPIRONOLACTONE
     Route: 048
  13. VI-DE 3 [Concomitant]
     Active Substance: CHOLECALCIFEROL
     Route: 048
  14. LIORESAL [Concomitant]
     Active Substance: BACLOFEN
     Route: 048

REACTIONS (1)
  - Death [Fatal]

NARRATIVE: CASE EVENT DATE: 20170120
